FAERS Safety Report 11103813 (Version 1)
Quarter: 2015Q2

REPORT INFORMATION
  Report Type: Report from Study
  Country: US (occurrence: None)
  Receive Date: 20150508
  Receipt Date: 20150508
  Transmission Date: 20150821
  Serious: Yes (Hospitalization, Other)
  Sender: FDA-Public Use
  Company Number: US-2015CRT000488

PATIENT
  Age: 39 Year
  Sex: Female

DRUGS (5)
  1. LISINOPRIL. [Concomitant]
     Active Substance: LISINOPRIL
  2. VITAMIN D [Concomitant]
     Active Substance: CHOLECALCIFEROL
  3. ALBUTEROL (SALBUTAMOL) [Concomitant]
     Active Substance: ALBUTEROL
  4. CYMBALTA [Concomitant]
     Active Substance: DULOXETINE HYDROCHLORIDE
  5. KORLYM [Suspect]
     Active Substance: MIFEPRISTONE
     Indication: CUSHING^S SYNDROME
     Dosage: 600 MG, DAILY, ORAL
     Route: 048
     Dates: start: 2014, end: 201503

REACTIONS (7)
  - Condition aggravated [None]
  - Communication disorder [None]
  - Hyperhidrosis [None]
  - Cushing^s syndrome [None]
  - Deafness [None]
  - Alopecia [None]
  - Renal disorder [None]

NARRATIVE: CASE EVENT DATE: 2015
